FAERS Safety Report 10237506 (Version 1)
Quarter: 2014Q2

REPORT INFORMATION
  Report Type: Report from Study
  Country: US (occurrence: US)
  Receive Date: 20140615
  Receipt Date: 20140615
  Transmission Date: 20141212
  Serious: Yes (Other)
  Sender: FDA-Public Use
  Company Number: US-BRISTOL-MYERS SQUIBB COMPANY-20963211

PATIENT
  Age: 91 Year
  Sex: Male

DRUGS (1)
  1. ELIQUIS [Suspect]

REACTIONS (1)
  - Tooth disorder [Unknown]
